FAERS Safety Report 8729421 (Version 3)
Quarter: 2012Q4

REPORT INFORMATION
  Report Type: 
  Country: DE (occurrence: DE)
  Receive Date: 20120817
  Receipt Date: 20120924
  Transmission Date: 20130627
  Serious: Yes (Other)
  Sender: FDA-Public Use
  Company Number: DE-NOVOPROD-357613

PATIENT
  Age: 57 Year
  Sex: Female
  Weight: 80.4 kg

DRUGS (9)
  1. NORDITROPIN FLEXPRO [Suspect]
     Indication: GROWTH HORMONE DEFICIENCY
     Dosage: 0.2 mg, qd
     Route: 058
     Dates: start: 20120213
  2. LISINOPRIL [Concomitant]
     Indication: HYPERTENSION
     Dosage: 12.5 mg, UNK
     Route: 048
     Dates: start: 2008
  3. LISINOPRIL PLUS [Concomitant]
     Indication: HYPERTENSION
     Dosage: 12.5 mg, UNK
     Route: 048
     Dates: start: 2008
  4. MOVICOL                            /01625101/ [Concomitant]
     Indication: CONSTIPATION
     Dosage: UNK, prn
  5. BUSCOPAN [Concomitant]
     Indication: CONSTIPATION
     Dosage: UNK, prn
  6. LEFAX                              /00282601/ [Concomitant]
     Indication: CONSTIPATION
     Dosage: UNK, prn
  7. TILIDIN [Concomitant]
     Indication: RHEUMATOID ARTHRITIS
     Dosage: UNK, prn
  8. L-THYROXIN [Concomitant]
     Dosage: 50 ?g, UNK
  9. HYDROCORTISONE [Concomitant]
     Indication: HYPOPITUITARISM
     Dosage: UNK
     Route: 048
     Dates: start: 201107

REACTIONS (4)
  - Pituitary tumour recurrent [Not Recovered/Not Resolved]
  - Arteriospasm coronary [Recovered/Resolved]
  - Angina pectoris [Recovered/Resolved]
  - Troponin increased [Recovered/Resolved]
